FAERS Safety Report 14704880 (Version 2)
Quarter: 2018Q2

REPORT INFORMATION
  Report Type: Spontaneous
  Country: JP (occurrence: JP)
  Receive Date: 20180402
  Receipt Date: 20180402
  Transmission Date: 20180711
  Serious: Yes (Other)
  Sender: FDA-Public Use
  Company Number: PHJP2018JP006959

PATIENT
  Age: 20 Year
  Sex: Male

DRUGS (1)
  1. CICLOSPORIN [Suspect]
     Active Substance: CYCLOSPORINE
     Indication: NEPHROTIC SYNDROME
     Dosage: UNK
     Route: 065

REACTIONS (3)
  - Renal vein thrombosis [Recovering/Resolving]
  - Flank pain [Unknown]
  - Pulmonary artery thrombosis [Unknown]
